FAERS Safety Report 18480590 (Version 11)
Quarter: 2021Q1

REPORT INFORMATION
  Report Type: Spontaneous
  Country: PL (occurrence: PL)
  Receive Date: 20201109
  Receipt Date: 20210107
  Transmission Date: 20210419
  Serious: Yes (Hospitalization, Other)
  Sender: FDA-Public Use
  Company Number: PL-PFIZER INC-2020430873

PATIENT
  Age: 61 Year
  Sex: Male
  Weight: 100 kg

DRUGS (21)
  1. VALSARTAN. [Suspect]
     Active Substance: VALSARTAN
     Dosage: 160 MILLIGRAM, QD
     Route: 065
  2. TORASEMIDE [Suspect]
     Active Substance: TORSEMIDE
     Dosage: 20 MILLIGRAM, QD
     Route: 065
  3. EPLERENONE. [Suspect]
     Active Substance: EPLERENONE
     Dosage: 50 MILLIGRAM, QD
     Route: 065
  4. TORASEMIDE [Suspect]
     Active Substance: TORSEMIDE
     Dosage: UNK UNK, BID
     Route: 065
  5. METOPROLOL. [Suspect]
     Active Substance: METOPROLOL
     Dosage: 50 MG, QD
     Route: 065
  6. TORASEMIDE [Suspect]
     Active Substance: TORSEMIDE
     Dosage: UNK UNK, BID
     Route: 065
  7. POTASSIUM [Concomitant]
     Active Substance: POTASSIUM
     Dosage: UNK
     Route: 065
  8. PANTOPRAZOLE [Suspect]
     Active Substance: PANTOPRAZOLE
     Dosage: 20 MILLIGRAM, QD
     Route: 065
  9. APIXABAN [Suspect]
     Active Substance: APIXABAN
     Dosage: UNK
     Route: 065
  10. EPLERENONE. [Suspect]
     Active Substance: EPLERENONE
     Dosage: 50 MILLIGRAM, QD
     Route: 065
  11. WARFARIN SODIUM. [Suspect]
     Active Substance: WARFARIN SODIUM
     Dosage: AS PER INR
     Route: 065
  12. METOPROLOL. [Suspect]
     Active Substance: METOPROLOL
     Dosage: 47.5 MILLIGRAM, QD
     Route: 065
  13. RIVAROXABAN [Suspect]
     Active Substance: RIVAROXABAN
     Dosage: 20 MILLIGRAM, QD
     Route: 065
  14. SACUBITRIL/VALSARTAN [Suspect]
     Active Substance: SACUBITRIL\VALSARTAN
     Dosage: 100 MILLIGRAM, QD
     Route: 065
  15. SACUBITRIL/VALSARTAN [Suspect]
     Active Substance: SACUBITRIL\VALSARTAN
     Dosage: 400 MILLIGRAM, QD
     Route: 065
  16. AMIODARONE [Suspect]
     Active Substance: AMIODARONE
     Dosage: 200 MILLIGRAM, QD
     Route: 042
  17. SACUBITRIL/VALSARTAN [Suspect]
     Active Substance: SACUBITRIL\VALSARTAN
     Dosage: 200 MILLIGRAM, QD
     Route: 065
  18. SACUBITRIL/VALSARTAN [Suspect]
     Active Substance: SACUBITRIL\VALSARTAN
     Dosage: 200 MILLIGRAM, QD
     Route: 065
  19. ATORVASTATIN CALCIUM. [Suspect]
     Active Substance: ATORVASTATIN CALCIUM
     Dosage: 20 MILLIGRAM, QD
     Route: 065
  20. TORASEMIDE [Suspect]
     Active Substance: TORSEMIDE
     Dosage: 30 MILLIGRAM, QD
     Route: 065
  21. SACUBITRIL/VALSARTAN [Suspect]
     Active Substance: SACUBITRIL\VALSARTAN
     Dosage: 400 MILLIGRAM, QD
     Route: 065

REACTIONS (13)
  - Alanine aminotransferase increased [Unknown]
  - Aortic valve incompetence [Unknown]
  - Weight increased [Unknown]
  - Diarrhoea [Recovered/Resolved]
  - Inappropriate schedule of product administration [Unknown]
  - Off label use [Unknown]
  - Cardiac failure congestive [Unknown]
  - Glomerular filtration rate decreased [Unknown]
  - Blood cholesterol increased [Unknown]
  - Contraindicated product administered [Unknown]
  - Heart rate increased [Recovered/Resolved]
  - Blood creatinine increased [Unknown]
  - Oedema peripheral [Recovered/Resolved]

NARRATIVE: CASE EVENT DATE: 201808
